FAERS Safety Report 9648075 (Version 2)
Quarter: 2013Q4

REPORT INFORMATION
  Report Type: Spontaneous
  Country: DE (occurrence: DE)
  Receive Date: 20131028
  Receipt Date: 20131115
  Transmission Date: 20140711
  Serious: Yes (Life-Threatening, Hospitalization)
  Sender: FDA-Public Use
  Company Number: DE-JNJFOC-20131012295

PATIENT
  Age: 43 Year
  Sex: Male

DRUGS (18)
  1. RISPERDAL [Suspect]
     Indication: PRODUCT USED FOR UNKNOWN INDICATION
     Route: 048
     Dates: start: 20130214, end: 20130214
  2. RISPERDAL [Suspect]
     Indication: PRODUCT USED FOR UNKNOWN INDICATION
     Route: 048
     Dates: start: 20130408, end: 20130410
  3. RISPERDAL [Suspect]
     Indication: PRODUCT USED FOR UNKNOWN INDICATION
     Route: 048
     Dates: start: 20130305, end: 20130407
  4. RISPERDAL [Suspect]
     Indication: PRODUCT USED FOR UNKNOWN INDICATION
     Route: 048
     Dates: start: 20130226, end: 20130304
  5. RISPERDAL [Suspect]
     Indication: PRODUCT USED FOR UNKNOWN INDICATION
     Route: 048
     Dates: start: 20130215, end: 20130225
  6. RISPERDAL [Suspect]
     Indication: PRODUCT USED FOR UNKNOWN INDICATION
     Route: 048
     Dates: start: 20130411, end: 20130414
  7. RISPERDAL [Suspect]
     Indication: PRODUCT USED FOR UNKNOWN INDICATION
     Route: 048
     Dates: start: 20130211, end: 20130213
  8. RISPERDAL [Suspect]
     Indication: PRODUCT USED FOR UNKNOWN INDICATION
     Dosage: 0-3 MG
     Route: 048
     Dates: start: 20130130, end: 20130210
  9. RISPERDAL [Suspect]
     Indication: PRODUCT USED FOR UNKNOWN INDICATION
     Route: 048
     Dates: start: 20130416, end: 20130418
  10. RISPERDAL [Suspect]
     Indication: PRODUCT USED FOR UNKNOWN INDICATION
     Route: 048
     Dates: start: 20130415, end: 20130415
  11. RISPERDAL CONSTA [Suspect]
     Indication: PRODUCT USED FOR UNKNOWN INDICATION
     Route: 030
     Dates: start: 20130325, end: 20130325
  12. RISPERDAL CONSTA [Suspect]
     Indication: PRODUCT USED FOR UNKNOWN INDICATION
     Route: 030
     Dates: start: 20130408, end: 20130408
  13. AKINETON [Suspect]
     Indication: PRODUCT USED FOR UNKNOWN INDICATION
     Route: 048
     Dates: start: 20130306, end: 20130423
  14. REMERGIL [Concomitant]
     Dosage: 0 - 45 MG
     Route: 048
     Dates: start: 20130130
  15. CIPRALEX [Concomitant]
     Route: 048
     Dates: start: 20130319, end: 20130321
  16. CIPRALEX [Concomitant]
     Route: 048
     Dates: start: 20130314, end: 20130318
  17. CIPRALEX [Concomitant]
     Route: 048
     Dates: start: 20130305, end: 20130313
  18. CIPRALEX [Concomitant]
     Route: 048
     Dates: start: 20130301, end: 20130304

REACTIONS (3)
  - Sinoatrial block [Recovered/Resolved]
  - Syncope [Unknown]
  - Dizziness [Unknown]
